FAERS Safety Report 9200391 (Version 1)
Quarter: 2013Q1

REPORT INFORMATION
  Report Type: Spontaneous
  Country: US (occurrence: US)
  Receive Date: 20130329
  Receipt Date: 20130329
  Transmission Date: 20140127
  Serious: Yes (Other)
  Sender: FDA-Public Use
  Company Number: US-BRISTOL-MYERS SQUIBB COMPANY-18724385

PATIENT
  Sex: Male

DRUGS (1)
  1. NULOJIX [Suspect]

REACTIONS (1)
  - Pulmonary oedema [Unknown]
